FAERS Safety Report 4322334-1 (Version None)
Quarter: 2004Q1

REPORT INFORMATION
  Report Type: 
  Country: None (occurrence: None)
  Receive Date: 20040319
  Receipt Date: 20040310
  Transmission Date: 20041129
  Serious: Yes (Hospitalization, Other)
  Sender: FDA-Public Use
  Company Number: HQWYE103006JAN04

PATIENT
  Age: 55 Year
  Sex: Male

DRUGS (8)
  1. ANCARON (AMIODARONE, TABLET) [Suspect]
     Indication: ATRIAL FIBRILLATION
     Dosage: SEE IMAGE
     Route: 048
     Dates: start: 20031126, end: 20031224
  2. ANCARON (AMIODARONE, TABLET) [Suspect]
     Indication: ATRIAL FIBRILLATION
     Dosage: SEE IMAGE
     Route: 048
     Dates: start: 20040107
  3. ALDACTONE [Suspect]
     Indication: CARDIAC FAILURE CONGESTIVE
     Dosage: 25 MG 1 X PER 1 DAY
     Route: 048
     Dates: start: 20031209, end: 20031222
  4. BAYASPIRINA (ACETYLSALICYLIC ACID) [Suspect]
     Indication: ATRIAL FIBRILLATION
     Dosage: 100 MG 1 X PER 1 DAY
     Route: 048
     Dates: start: 20031209, end: 20031222
  5. MUCOSTA (REBAMIPIDE) [Suspect]
     Indication: GASTRITIS
     Dosage: 100 MG X 3
     Route: 048
     Dates: start: 19990325, end: 20031222
  6. NU-LOTAN (LOSARTAN POTASSIUM) [Concomitant]
  7. LASIX [Concomitant]
  8. TORSEMIDE [Concomitant]

REACTIONS (1)
  - DRUG ERUPTION [None]
